FAERS Safety Report 5507087-3 (Version None)
Quarter: 2007Q4

REPORT INFORMATION
  Report Type: 
  Country: None (occurrence: None)
  Receive Date: 20071105
  Receipt Date: 20071030
  Transmission Date: 20080405
  Serious: Yes (Death)
  Sender: FDA-Public Use
  Company Number: FR-MERCK-0710FRA00089

PATIENT
  Age: 24 Year
  Sex: Male

DRUGS (9)
  1. EMEND [Suspect]
     Indication: PROPHYLAXIS OF NAUSEA AND VOMITING
     Route: 048
     Dates: start: 20071001, end: 20071001
  2. EMEND [Suspect]
     Route: 048
     Dates: start: 20071002, end: 20071003
  3. CISPLATIN [Suspect]
     Indication: TESTIS CANCER
     Route: 041
     Dates: start: 20071001, end: 20071005
  4. ETOPOSIDE [Suspect]
     Indication: TESTIS CANCER
     Route: 041
     Dates: start: 20071001, end: 20071005
  5. BLEOMYCIN [Suspect]
     Indication: TESTIS CANCER
     Route: 030
     Dates: start: 20071001, end: 20071001
  6. METHYLPREDNISOLONE SODIUM SUCCINATE [Suspect]
     Indication: PROPHYLAXIS OF NAUSEA AND VOMITING
     Route: 041
     Dates: start: 20071001, end: 20071005
  7. HYDROCORTISONE HEMISUCCINATE [Suspect]
     Indication: PROPHYLAXIS OF NAUSEA AND VOMITING
     Route: 041
     Dates: start: 20071001, end: 20071001
  8. ALIZAPRIDE HYDROCHLORIDE [Suspect]
     Indication: PROPHYLAXIS OF NAUSEA AND VOMITING
     Route: 041
     Dates: start: 20071001, end: 20071005
  9. ONDANSETRON HYDROCHLORIDE [Suspect]
     Indication: PROPHYLAXIS OF NAUSEA AND VOMITING
     Route: 041
     Dates: start: 20071001, end: 20071005

REACTIONS (1)
  - CARDIAC ARREST [None]
